FAERS Safety Report 6095664-3 (Version None)
Quarter: 2009Q1

REPORT INFORMATION
  Report Type: 
  Country: None (occurrence: None)
  Receive Date: 20090227
  Receipt Date: 20080519
  Transmission Date: 20090719
  Serious: No
  Sender: FDA-Public Use
  Company Number: A0728564A

PATIENT
  Age: 55 Year
  Sex: Male

DRUGS (4)
  1. LAMICTAL [Suspect]
     Indication: BIPOLAR DISORDER
     Dosage: 125MG PER DAY
     Route: 048
     Dates: start: 20071121
  2. PROVIGIL [Concomitant]
  3. CLONAZEPAM [Concomitant]
  4. OTHER MEDICATIONS [Concomitant]

REACTIONS (5)
  - ARTHRALGIA [None]
  - FEELING ABNORMAL [None]
  - NIGHT SWEATS [None]
  - PRURITUS [None]
  - PRURITUS GENERALISED [None]
